FAERS Safety Report 17484387 (Version 1)
Quarter: 2020Q1

REPORT INFORMATION
  Report Type: Spontaneous
  Country: DE (occurrence: DE)
  Receive Date: 20200302
  Receipt Date: 20200302
  Transmission Date: 20200409
  Serious: Yes (Other)
  Sender: FDA-Public Use
  Company Number: DE-BAYER-2020-022045

PATIENT
  Age: 23 Year
  Sex: Female

DRUGS (1)
  1. KYLEENA [Suspect]
     Active Substance: LEVONORGESTREL
     Indication: CONTRACEPTION
     Dosage: 17.5 ?G PER DAY CONTINUOUSLY
     Route: 015
     Dates: start: 20170622, end: 20191225

REACTIONS (5)
  - Amenorrhoea [None]
  - Ectopic pregnancy with contraceptive device [Recovered/Resolved]
  - Chlamydial infection [Recovered/Resolved]
  - Drug ineffective [None]
  - Endometriosis [Recovered/Resolved]

NARRATIVE: CASE EVENT DATE: 201712
